FAERS Safety Report 24701187 (Version 1)
Quarter: 2024Q4

REPORT INFORMATION
  Report Type: Spontaneous
  Country: US (occurrence: US)
  Receive Date: 20241205
  Receipt Date: 20241205
  Transmission Date: 20250114
  Serious: No
  Sender: ALEXION PHARMACEUTICALS
  Company Number: US-AstraZeneca-CH-00761415A

PATIENT

DRUGS (4)
  1. TRUQAP [Suspect]
     Active Substance: CAPIVASERTIB
     Route: 065
  2. TRUQAP [Suspect]
     Active Substance: CAPIVASERTIB
  3. TRUQAP [Suspect]
     Active Substance: CAPIVASERTIB
     Route: 065
  4. TRUQAP [Suspect]
     Active Substance: CAPIVASERTIB

REACTIONS (2)
  - Dizziness [Unknown]
  - Vertigo [Unknown]
